FAERS Safety Report 7119092-4 (Version None)
Quarter: 2010Q4

REPORT INFORMATION
  Report Type: 
  Country: None (occurrence: None)
  Receive Date: 20101123
  Receipt Date: 20101116
  Transmission Date: 20110411
  Serious: Yes (Other)
  Sender: FDA-Public Use
  Company Number: B0685699A

PATIENT
  Sex: Female

DRUGS (5)
  1. LAMICTAL [Suspect]
     Indication: EPILEPSY
     Dosage: 6TAB PER DAY
     Route: 048
     Dates: start: 20030101
  2. PRIORIN [Suspect]
     Indication: SUPPLEMENTATION THERAPY
     Dosage: 3CAP PER DAY
     Route: 048
     Dates: start: 20100901, end: 20100920
  3. SINGULAIR [Concomitant]
     Indication: ASTHMA
     Dosage: 1TAB PER DAY
     Route: 048
     Dates: start: 20000101
  4. SERETIDE [Concomitant]
     Indication: ASTHMA
     Dosage: 2U PER DAY
     Dates: start: 20000101
  5. DIANE NOVA [Concomitant]
     Indication: ENDOMETRIOSIS
     Route: 048
     Dates: start: 20040101

REACTIONS (2)
  - DRUG INTERACTION [None]
  - EPILEPTIC AURA [None]
